FAERS Safety Report 8443343-7 (Version None)
Quarter: 2012Q2

REPORT INFORMATION
  Report Type: 
  Country: None (occurrence: None)
  Receive Date: 20120618
  Receipt Date: 20120606
  Transmission Date: 20120825
  Serious: Yes (Hospitalization, Other)
  Sender: FDA-Public Use
  Company Number: DE-BRISTOL-MYERS SQUIBB COMPANY-16677932

PATIENT
  Sex: Female
  Weight: 3 kg

DRUGS (3)
  1. FOLSAURE [Concomitant]
     Dosage: 0.4MG PER DAY ORALLY
     Route: 064
  2. METFORMIN HCL [Suspect]
     Route: 064
  3. LEVOTHYROXINE SODIUM [Suspect]
     Dosage: ORALLY 50 MCG PER DAY
     Route: 064

REACTIONS (3)
  - PULMONARY HYPOPLASIA [None]
  - CONGENITAL DIAPHRAGMATIC HERNIA [None]
  - PATENT DUCTUS ARTERIOSUS [None]
